FAERS Safety Report 4453514-2 (Version None)
Quarter: 2004Q3

REPORT INFORMATION
  Report Type: 
  Country: None (occurrence: None)
  Receive Date: 20040920
  Receipt Date: 20040910
  Transmission Date: 20050211
  Serious: Yes (Life-Threatening, Hospitalization)
  Sender: FDA-Public Use
  Company Number: US-JNJFOC-20040903341

PATIENT
  Age: 59 Year
  Sex: Female

DRUGS (9)
  1. REMICADE [Suspect]
     Route: 042
  2. REMICADE [Suspect]
     Indication: RHEUMATOID ARTHRITIS
     Route: 042
  3. METHOTREXATE [Concomitant]
     Indication: RHEUMATOID ARTHRITIS
  4. PREDNISONE [Concomitant]
     Indication: RHEUMATOID ARTHRITIS
     Dosage: 5-10 MG
  5. NEXIUM [Concomitant]
  6. MAXZIDE [Concomitant]
  7. MAXZIDE [Concomitant]
     Indication: HYPERTENSION
  8. ACE INHIBITOR [Concomitant]
     Indication: HYPERTENSION
  9. NORVASC [Concomitant]
     Indication: HYPERTENSION

REACTIONS (3)
  - COMA [None]
  - CONFUSIONAL STATE [None]
  - VASCULITIS CEREBRAL [None]
